FAERS Safety Report 13291975 (Version 1)
Quarter: 2017Q1

REPORT INFORMATION
  Report Type: Spontaneous
  Country: US (occurrence: US)
  Receive Date: 20170303
  Receipt Date: 20170303
  Transmission Date: 20170428
  Serious: No
  Sender: FDA-Public Use
  Company Number: US-GLAXOSMITHKLINE-US2017029625

PATIENT
  Sex: Male

DRUGS (2)
  1. ANORO ELLIPTA [Suspect]
     Active Substance: UMECLIDINIUM BROMIDE\VILANTEROL TRIFENATATE
     Indication: PRODUCT USED FOR UNKNOWN INDICATION
     Dosage: UNK
     Route: 055
  2. SYMBICORT [Concomitant]
     Active Substance: BUDESONIDE\FORMOTEROL FUMARATE DIHYDRATE

REACTIONS (11)
  - Headache [Unknown]
  - Vision blurred [Unknown]
  - Drug ineffective [Unknown]
  - Sinus pain [Unknown]
  - Dry eye [Unknown]
  - Insomnia [Unknown]
  - Paranasal sinus discomfort [Unknown]
  - Dyspnoea [Unknown]
  - Micturition disorder [Unknown]
  - Dry throat [Unknown]
  - Nasal dryness [Unknown]
